FAERS Safety Report 12014599 (Version 1)
Quarter: 2016Q1

REPORT INFORMATION
  Report Type: Spontaneous
  Country: JP (occurrence: JP)
  Receive Date: 20160205
  Receipt Date: 20160205
  Transmission Date: 20160526
  Serious: Yes (Hospitalization)
  Sender: FDA-Public Use
  Company Number: JP-GE HEALTHCARE MEDICAL DIAGNOSTICS-VISP-PR-1601S-0016

PATIENT
  Age: 78 Year
  Sex: Male
  Weight: 62 kg

DRUGS (7)
  1. VISIPAQUE [Suspect]
     Active Substance: IODIXANOL
     Indication: CAROTID ARTERY STENOSIS
     Route: 042
     Dates: start: 20160105, end: 20160105
  2. VISIPAQUE [Suspect]
     Active Substance: IODIXANOL
     Indication: THERAPEUTIC PROCEDURE
  3. LANSOPRAZOLE. [Concomitant]
     Active Substance: LANSOPRAZOLE
  4. PLAVIX [Concomitant]
     Active Substance: CLOPIDOGREL BISULFATE
  5. TAMSULOSIN HYDROCHLORIDE. [Concomitant]
     Active Substance: TAMSULOSIN HYDROCHLORIDE
  6. BAYASPIRIN [Concomitant]
     Active Substance: ASPIRIN
     Dates: start: 20151220
  7. CRESTOR [Concomitant]
     Active Substance: ROSUVASTATIN CALCIUM
     Dates: start: 20151220

REACTIONS (3)
  - Pruritus [Unknown]
  - Rash [Recovering/Resolving]
  - Pyrexia [Recovering/Resolving]

NARRATIVE: CASE EVENT DATE: 20160107
